FAERS Safety Report 25287055 (Version 1)
Quarter: 2025Q2

REPORT INFORMATION
  Report Type: Spontaneous
  Country: US (occurrence: None)
  Receive Date: 20250508
  Receipt Date: 20250508
  Transmission Date: 20250717
  Serious: Yes (Hospitalization)
  Sender: FDA-CTU
  Company Number: None

PATIENT
  Sex: Female

DRUGS (3)
  1. COLISTIMETHATE SODIUM [Suspect]
     Active Substance: COLISTIMETHATE SODIUM
     Indication: Chronic obstructive pulmonary disease
     Dates: start: 20200306
  2. FORMOTEROL POW FUMARATE [Concomitant]
  3. STERILE WATER [Concomitant]
     Active Substance: WATER

REACTIONS (2)
  - Hospitalisation [None]
  - Therapy interrupted [None]
